FAERS Safety Report 7363240-8 (Version None)
Quarter: 2011Q1

REPORT INFORMATION
  Report Type: 
  Country: None (occurrence: None)
  Receive Date: 20110321
  Receipt Date: 20110221
  Transmission Date: 20110831
  Serious: No
  Sender: FDA-Public Use
  Company Number: US-B.I. PHARMACEUTICALS,INC./RIDGEFIELD-2011-BP-06439BP

PATIENT
  Sex: Female

DRUGS (7)
  1. EMEND [Concomitant]
     Indication: BREAST CANCER
  2. ONDANSETRON [Concomitant]
     Indication: NAUSEA
  3. CARVEDILOL [Concomitant]
     Indication: ATRIAL FIBRILLATION
     Dosage: 12.5 MG
  4. PRADAXA [Suspect]
     Indication: ATRIAL FIBRILLATION
     Dosage: 300 MG
     Route: 048
     Dates: start: 20110110, end: 20110221
  5. LISINOPRIL [Concomitant]
     Indication: HYPERTENSION
     Dosage: 5 MG
  6. DEXAMETHASONE [Concomitant]
     Indication: PROPHYLAXIS
     Dosage: 8 MG
  7. PROMETHAZINE [Concomitant]
     Indication: NAUSEA

REACTIONS (2)
  - EYE SWELLING [None]
  - RASH [None]
